FAERS Safety Report 5541520-6 (Version None)
Quarter: 2007Q4

REPORT INFORMATION
  Report Type: 
  Country: None (occurrence: None)
  Receive Date: 20071205
  Receipt Date: 20071127
  Transmission Date: 20080405
  Serious: Yes (Death)
  Sender: FDA-Public Use
  Company Number: 2007JP005361

PATIENT
  Age: 34 Year
  Sex: Male

DRUGS (3)
  1. PROGRAF [Suspect]
     Indication: RENAL TRANSPLANT
  2. IMURAN [Concomitant]
  3. PREDNISOLONE [Concomitant]

REACTIONS (5)
  - ASCITES [None]
  - LYMPHOPROLIFERATIVE DISORDER [None]
  - MELAENA [None]
  - NO THERAPEUTIC RESPONSE [None]
  - PANCREATITIS [None]
